FAERS Safety Report 6555517-0 (Version None)
Quarter: 2010Q1

REPORT INFORMATION
  Report Type: 
  Country: None (occurrence: None)
  Receive Date: 20100125
  Receipt Date: 20100108
  Transmission Date: 20100710
  Serious: Yes (Hospitalization, Other)
  Sender: FDA-Public Use
  Company Number: 09-AUR-09219

PATIENT
  Age: 46 Year
  Sex: Female

DRUGS (6)
  1. METFORMIN HCL [Suspect]
     Indication: TYPE 2 DIABETES MELLITUS
     Dosage: 850MG, TID, ORAL
     Route: 048
  2. NOVOMIX [Concomitant]
  3. RAMIPRIL [Concomitant]
  4. CITALOPRAM [Concomitant]
  5. QUETIAPINE [Concomitant]
  6. PROCYCLIDINE HYDROCHLORIDE 2MG TAB [Concomitant]

REACTIONS (18)
  - ABDOMINAL PAIN [None]
  - AGITATION [None]
  - ANION GAP INCREASED [None]
  - APPENDICECTOMY [None]
  - BLOOD GLUCOSE INCREASED [None]
  - BLOOD POTASSIUM INCREASED [None]
  - BLOOD PRESSURE DECREASED [None]
  - CONTINUOUS HAEMODIAFILTRATION [None]
  - DEHYDRATION [None]
  - DRUG LEVEL INCREASED [None]
  - HYPOTHERMIA [None]
  - LACTIC ACIDOSIS [None]
  - OVERDOSE [None]
  - PLATELET COUNT INCREASED [None]
  - RENAL FAILURE ACUTE [None]
  - TONGUE ULCERATION [None]
  - VOMITING [None]
  - WHITE BLOOD CELL COUNT INCREASED [None]
